FAERS Safety Report 13399806 (Version 5)
Quarter: 2017Q4

REPORT INFORMATION
  Report Type: Spontaneous
  Country: US (occurrence: US)
  Receive Date: 20170404
  Receipt Date: 20171219
  Transmission Date: 20180320
  Serious: Yes (Life-Threatening)
  Sender: FDA-Public Use
  Company Number: US-BION-006158

PATIENT
  Age: 82 Year
  Sex: Female
  Weight: 51.7 kg

DRUGS (4)
  1. ERGOCALCIFEROL. [Concomitant]
     Active Substance: ERGOCALCIFEROL
  2. CALCIUM CARBONATE/CALCIUM LACTOGLUCONATE [Concomitant]
  3. ALEVE [Suspect]
     Active Substance: NAPROXEN SODIUM
     Indication: ARTHRALGIA
     Dosage: DURATION OF DRUG ADMINISTRATION: ONCE
     Route: 048
  4. FISH OIL [Concomitant]
     Active Substance: FISH OIL

REACTIONS (7)
  - Feeling abnormal [Unknown]
  - Wrong technique in product usage process [Not Recovered/Not Resolved]
  - Headache [Unknown]
  - Retching [Unknown]
  - Foreign body in respiratory tract [Unknown]
  - Dyspnoea [Unknown]
  - Chromatopsia [Unknown]

NARRATIVE: CASE EVENT DATE: 201703
